FAERS Safety Report 4523541-5 (Version None)
Quarter: 2004Q4

REPORT INFORMATION
  Report Type: 
  Country: None (occurrence: None)
  Receive Date: 20041117
  Receipt Date: 20030812
  Transmission Date: 20050328
  Serious: Yes (Other)
  Sender: FDA-Public Use
  Company Number: US-JNJFOC-20040804728

PATIENT

DRUGS (1)
  1. LEVAQUIN [Suspect]
     Indication: DRUG USE FOR UNKNOWN INDICATION
     Dosage: INTRAVENOUS
     Route: 042

REACTIONS (2)
  - HYPERSENSITIVITY [None]
  - INJECTION SITE REACTION [None]
